FAERS Safety Report 5552384-9 (Version None)
Quarter: 2007Q4

REPORT INFORMATION
  Report Type: 
  Country: None (occurrence: None)
  Receive Date: 20071130
  Receipt Date: 20070820
  Transmission Date: 20080405
  Serious: No
  Sender: FDA-Public Use
  Company Number: US200708004502

PATIENT
  Age: 74 Year
  Sex: Female

DRUGS (5)
  1. BYETTA [Suspect]
     Indication: TYPE 2 DIABETES MELLITUS
     Dosage: 5 UG, 2/D, SUBCUTANEOUS; 10 UG, 2/D, SUBCUTANEOUS
     Route: 058
     Dates: start: 20070701, end: 20070816
  2. BYETTA [Suspect]
     Indication: TYPE 2 DIABETES MELLITUS
     Dosage: 5 UG, 2/D, SUBCUTANEOUS; 10 UG, 2/D, SUBCUTANEOUS
     Route: 058
     Dates: start: 20070816
  3. METFORMIN HCL [Concomitant]
  4. AMARYL [Concomitant]
  5. AVANDIA [Concomitant]

REACTIONS (7)
  - BLOOD GLUCOSE DECREASED [None]
  - BLOOD GLUCOSE INCREASED [None]
  - DIARRHOEA [None]
  - FEELING JITTERY [None]
  - HEADACHE [None]
  - NAUSEA [None]
  - VOMITING [None]
